FAERS Safety Report 13352361 (Version 4)
Quarter: 2017Q3

REPORT INFORMATION
  Report Type: Spontaneous
  Country: FR (occurrence: FR)
  Receive Date: 20170320
  Receipt Date: 20170921
  Transmission Date: 20171127
  Serious: Yes (Death, Hospitalization)
  Sender: FDA-Public Use
  Company Number: FR-ALLERGAN-1710375US

PATIENT
  Age: 61 Year
  Sex: Male

DRUGS (7)
  1. BOTOX [Suspect]
     Active Substance: ONABOTULINUMTOXINA
     Dosage: 100 UNITS, SINGLE
     Route: 030
     Dates: start: 20170123, end: 20170123
  2. BOTOX [Suspect]
     Active Substance: ONABOTULINUMTOXINA
     Dosage: 200 UNITS, SINGLE
     Route: 030
     Dates: start: 20170123, end: 20170123
  3. LAROXYL [Concomitant]
     Active Substance: AMITRIPTYLINE
     Indication: PRODUCT USED FOR UNKNOWN INDICATION
     Route: 065
  4. COVERSYL [Concomitant]
     Active Substance: PERINDOPRIL
     Indication: PRODUCT USED FOR UNKNOWN INDICATION
     Route: 065
  5. ASPEGIC [Concomitant]
     Active Substance: ASPIRIN DL-LYSINE
     Indication: PRODUCT USED FOR UNKNOWN INDICATION
     Route: 065
  6. BOTOX [Suspect]
     Active Substance: ONABOTULINUMTOXINA
     Indication: MUSCLE SPASTICITY
     Dosage: 50 UNITS, SINGLE
     Route: 030
     Dates: start: 20170123, end: 20170123
  7. KEPPRA [Concomitant]
     Active Substance: LEVETIRACETAM
     Indication: PRODUCT USED FOR UNKNOWN INDICATION
     Route: 065

REACTIONS (11)
  - Death [Fatal]
  - Fall [Unknown]
  - Asthenia [Unknown]
  - Chronic kidney disease [Unknown]
  - Eosinophilia [Unknown]
  - Infection [Unknown]
  - Pyrexia [Unknown]
  - Fatigue [Unknown]
  - Muscular weakness [Unknown]
  - Diarrhoea [Unknown]
  - Walking disability [Unknown]

NARRATIVE: CASE EVENT DATE: 201703
